FAERS Safety Report 4599432-0 (Version None)
Quarter: 2005Q1

REPORT INFORMATION
  Report Type: 
  Country: None (occurrence: None)
  Receive Date: 20050127
  Receipt Date: 20041014
  Transmission Date: 20050727
  Serious: No
  Sender: FDA-Public Use
  Company Number: USA041081130

PATIENT
  Sex: Female

DRUGS (6)
  1. STRATTERA [Suspect]
     Dosage: 80 MG DAY
     Dates: start: 20040930
  2. NASAL SPRAY (OXYMETAZOLINE HYDROCHLORIDE) [Concomitant]
  3. SUDAFED 12 HOUR [Concomitant]
  4. ZYRTEC [Concomitant]
  5. MOTRIN [Concomitant]
  6. BENADRYL [Concomitant]

REACTIONS (9)
  - ABDOMINAL PAIN UPPER [None]
  - ABNORMAL SENSATION IN EYE [None]
  - CONSTIPATION [None]
  - DIZZINESS [None]
  - DRY MOUTH [None]
  - FEELING ABNORMAL [None]
  - HEADACHE [None]
  - MIDDLE INSOMNIA [None]
  - NAUSEA [None]
